FAERS Safety Report 16008190 (Version 2)
Quarter: 2020Q3

REPORT INFORMATION
  Report Type: Spontaneous
  Country: US (occurrence: US)
  Receive Date: 20190226
  Receipt Date: 20200723
  Transmission Date: 20201102
  Serious: Yes (Other)
  Sender: FDA-Public Use
  Company Number: US-PFIZER INC-2019085362

PATIENT
  Age: 42 Year
  Sex: Male

DRUGS (1)
  1. XELJANZ XR [Suspect]
     Active Substance: TOFACITINIB CITRATE
     Indication: RHEUMATOID ARTHRITIS
     Dosage: 11 MG, DAILY
     Route: 048
     Dates: start: 2019

REACTIONS (8)
  - Osteoporosis [Unknown]
  - Gout [Unknown]
  - Pain [Unknown]
  - Fatigue [Unknown]
  - Rheumatoid arthritis [Unknown]
  - Depression [Unknown]
  - Condition aggravated [Unknown]
  - Systemic lupus erythematosus [Unknown]
